FAERS Safety Report 4608873-4 (Version None)
Quarter: 2005Q1

REPORT INFORMATION
  Report Type: 
  Country: None (occurrence: None)
  Receive Date: 20050315
  Receipt Date: 20050301
  Transmission Date: 20050727
  Serious: Yes (Other)
  Sender: FDA-Public Use
  Company Number: B0373880A

PATIENT
  Age: 3 Week
  Sex: Female

DRUGS (3)
  1. FLUSPIRAL [Suspect]
     Dates: start: 20040402, end: 20050205
  2. FORMOTEROL FUMERATE [Suspect]
     Dates: start: 20040402, end: 20050205
  3. VENLAFAXINE HCL [Suspect]
     Dates: start: 20040402, end: 20050205

REACTIONS (2)
  - DRUG EXPOSURE DURING PREGNANCY [None]
  - MICROPHTHALMOS [None]
